FAERS Safety Report 18820002 (Version 1)
Quarter: 2021Q1

REPORT INFORMATION
  Report Type: Spontaneous
  Country: US (occurrence: US)
  Receive Date: 20210201
  Receipt Date: 20210201
  Transmission Date: 20210419
  Serious: Yes (Other)
  Sender: FDA-Public Use
  Company Number: None

PATIENT
  Age: 86 Year
  Sex: Male

DRUGS (64)
  1. ETOMIDATE. [Concomitant]
     Active Substance: ETOMIDATE
  2. FAMOTIDINE. [Concomitant]
     Active Substance: FAMOTIDINE
  3. HYDRALAZINE [Concomitant]
     Active Substance: HYDRALAZINE HYDROCHLORIDE
  4. LABETALOL [Concomitant]
     Active Substance: LABETALOL\LABETALOL HYDROCHLORIDE
  5. LISINOPRIL. [Concomitant]
     Active Substance: LISINOPRIL
  6. TAMSULOSIN [Concomitant]
     Active Substance: TAMSULOSIN
  7. CHLORHEXIDINE GLUCONATE ORAL RINSE 0.12% [Suspect]
     Active Substance: CHLORHEXIDINE GLUCONATE
     Indication: PNEUMONIA
     Dosage: ?          OTHER ROUTE:SWISH AND SPIT?
     Route: 048
     Dates: start: 20200908, end: 20200923
  8. ALBUTEROL. [Concomitant]
     Active Substance: ALBUTEROL
  9. BISACODYL SUPP [Concomitant]
  10. CEFTRIAXONE. [Concomitant]
     Active Substance: CEFTRIAXONE
  11. DEXTROSE 50% [Concomitant]
     Active Substance: DEXTROSE
  12. DOCUSATE LIQ [Concomitant]
  13. NICARDIPINE [Concomitant]
     Active Substance: NICARDIPINE
  14. PROPOFOL. [Concomitant]
     Active Substance: PROPOFOL
  15. SENOKOT [Concomitant]
     Active Substance: SENNOSIDES
  16. NACL 0.95 SOLUTION [Concomitant]
  17. CHLORHEXIDINE GLUCONATE ORAL RINSE 0.12% [Suspect]
     Active Substance: CHLORHEXIDINE GLUCONATE
     Indication: PROPHYLAXIS
     Dosage: ?          OTHER ROUTE:SWISH AND SPIT?
     Route: 048
     Dates: start: 20200908, end: 20200923
  18. ASPIRIN. [Concomitant]
     Active Substance: ASPIRIN
  19. HEPARIN [Concomitant]
     Active Substance: HEPARIN SODIUM
  20. VISIPAQUE [Concomitant]
     Active Substance: IODIXANOL
  21. LIDOCAINE. [Concomitant]
     Active Substance: LIDOCAINE
  22. NACL 0.9% [Concomitant]
     Active Substance: SODIUM CHLORIDE
  23. ADDERALL [Concomitant]
     Active Substance: AMPHETAMINE ASPARTATE\AMPHETAMINE SULFATE\DEXTROAMPHETAMINE SACCHARATE\DEXTROAMPHETAMINE SULFATE
  24. DUO?NEB [Concomitant]
  25. KCI [Concomitant]
  26. PROSOURCE POWDER [Concomitant]
  27. CEFAZOLIN [Concomitant]
     Active Substance: CEFAZOLIN
  28. FUROSEMIDE. [Concomitant]
     Active Substance: FUROSEMIDE
  29. MG CITRATE SOLUTION [Concomitant]
  30. MODAFINIL. [Concomitant]
     Active Substance: MODAFINIL
  31. NOREPINEPHRINE. [Concomitant]
     Active Substance: NOREPINEPHRINE
  32. ONDANSETRON [Concomitant]
     Active Substance: ONDANSETRON
  33. MIRALAX [Concomitant]
     Active Substance: POLYETHYLENE GLYCOL 3350
  34. NACL 3% SOLN [Concomitant]
  35. CHLORHEXIDINE GLUCONATE ORAL RINSE 0.12% [Suspect]
     Active Substance: CHLORHEXIDINE GLUCONATE
     Indication: PNEUMONIA
     Dosage: ?          OTHER ROUTE:SWISH AND SPIT?
     Route: 048
     Dates: start: 20200824, end: 20200905
  36. CHLORHEXIDINE GLUCONATE ORAL RINSE 0.12% [Suspect]
     Active Substance: CHLORHEXIDINE GLUCONATE
     Indication: PROPHYLAXIS
     Dosage: ?          OTHER ROUTE:SWISH AND SPIT?
     Route: 048
     Dates: start: 20200824, end: 20200905
  37. AMLODIPINE [Concomitant]
     Active Substance: AMLODIPINE BESYLATE
  38. BANATROL PLUS [Concomitant]
  39. FAMOTIDINE SUSP [Concomitant]
  40. INSULIN REGULAR HUMAN [Concomitant]
  41. LEVOFLOXACIN. [Concomitant]
     Active Substance: LEVOFLOXACIN
  42. EFFER?K [Concomitant]
  43. VANCOMYCIN [Concomitant]
     Active Substance: VANCOMYCIN
  44. APAP ELIXIR [Concomitant]
  45. ALBUMIN [Concomitant]
     Active Substance: ALBUMIN HUMAN
  46. ALTEPLASE. [Concomitant]
     Active Substance: ALTEPLASE
  47. LAC?HYDRIN LOTION [Concomitant]
  48. DEXMEDETOMIDINE. [Concomitant]
     Active Substance: DEXMEDETOMIDINE
  49. FENTANYL. [Concomitant]
     Active Substance: FENTANYL
  50. LIDOCAINE HYDROCHLORIDE AND EPINEPHRINE BITARTRATE [Concomitant]
     Active Substance: EPINEPHRINE BITARTRATE\LIDOCAINE HYDROCHLORIDE
  51. MELATONIN [Concomitant]
     Active Substance: MELATONIN
  52. MIDAZOLAM. [Concomitant]
     Active Substance: MIDAZOLAM
  53. TRANEXAMIC ACID. [Concomitant]
     Active Substance: TRANEXAMIC ACID
  54. ATORVASTATIN [Concomitant]
     Active Substance: ATORVASTATIN
  55. GTUAIFENESIN [Concomitant]
  56. HEPARIN [Concomitant]
     Active Substance: HEPARIN SODIUM
  57. OMNIPAQUE [Concomitant]
     Active Substance: IOHEXOL
  58. LEVETIRACETAM SOLN [Concomitant]
  59. LEVETIRACETAM. [Concomitant]
     Active Substance: LEVETIRACETAM
  60. ZOSYN [Concomitant]
     Active Substance: PIPERACILLIN SODIUM\TAZOBACTAM SODIUM
  61. ROCURONIUM [Concomitant]
     Active Substance: ROCURONIUM BROMIDE
  62. SENOKOT SYRUP [Concomitant]
  63. NACL [Concomitant]
     Active Substance: SODIUM CHLORIDE
  64. FLEET ENEMA [Concomitant]
     Active Substance: SODIUM PHOSPHATE, DIBASIC\SODIUM PHOSPHATE, MONOBASIC

REACTIONS (8)
  - Aphasia [None]
  - Product contamination microbial [None]
  - Respiratory failure [None]
  - Staphylococcus test positive [None]
  - Hemiparesis [None]
  - Product quality issue [None]
  - Burkholderia test positive [None]
  - Haemorrhagic stroke [None]
